FAERS Safety Report 7787023-X (Version None)
Quarter: 2011Q3

REPORT INFORMATION
  Report Type: 
  Country: None (occurrence: None)
  Receive Date: 20110929
  Receipt Date: 20110927
  Transmission Date: 20111222
  Serious: No
  Sender: FDA-Public Use
  Company Number: US-PFIZER INC-2011230281

PATIENT
  Sex: Female

DRUGS (1)
  1. IBUPROFEN (ADVIL) [Suspect]
     Indication: PELVIC PAIN
     Dosage: 200 MG, 2X/DAY
     Dates: start: 20090101, end: 20110926

REACTIONS (4)
  - VULVOVAGINAL DRYNESS [None]
  - VAGINITIS BACTERIAL [None]
  - VULVOVAGINAL PRURITUS [None]
  - VULVOVAGINAL MYCOTIC INFECTION [None]
